FAERS Safety Report 16903596 (Version 1)
Quarter: 2019Q4

REPORT INFORMATION
  Report Type: Spontaneous
  Country: US (occurrence: US)
  Receive Date: 20190817
  Receipt Date: 20190817
  Transmission Date: 20200122
  Serious: Yes (Hospitalization)
  Sender: FDA-Public Use
  Company Number: None

PATIENT
  Sex: Female
  Weight: 45.6 kg

DRUGS (1)
  1. ERBITUX [Suspect]
     Active Substance: CETUXIMAB
     Dates: end: 20190729

REACTIONS (19)
  - Pyrexia [None]
  - White blood cell count increased [None]
  - Haemoglobin decreased [None]
  - Blood sodium decreased [None]
  - Urinary tract infection [None]
  - Asthenia [None]
  - Mental disorder [None]
  - Dermatitis acneiform [None]
  - Anaemia [None]
  - Blood lactic acid decreased [None]
  - Complication associated with device [None]
  - Fatigue [None]
  - Anxiety [None]
  - Culture urine positive [None]
  - Dysphagia [None]
  - Platelet count increased [None]
  - Treatment noncompliance [None]
  - Mucosal inflammation [None]
  - Escherichia infection [None]

NARRATIVE: CASE EVENT DATE: 20190802
